FAERS Safety Report 18370022 (Version 3)
Quarter: 2021Q1

REPORT INFORMATION
  Report Type: Report from Study
  Country: DE (occurrence: DE)
  Receive Date: 20201012
  Receipt Date: 20210205
  Transmission Date: 20210419
  Serious: Yes (Other)
  Sender: FDA-Public Use
  Company Number: DE-AMGEN-DEUNI2020163935

PATIENT
  Age: 55 Year
  Sex: Female

DRUGS (8)
  1. ERENUMAB [Suspect]
     Active Substance: ERENUMAB
     Dosage: 70 MILLIGRAM
     Route: 065
     Dates: start: 20200727, end: 20200727
  2. ERENUMAB [Suspect]
     Active Substance: ERENUMAB
     Indication: MIGRAINE
     Dosage: 70 MILLIGRAM
     Route: 065
     Dates: start: 20200504, end: 20200504
  3. SUMATRIPTAN. [Concomitant]
     Active Substance: SUMATRIPTAN
     Indication: MIGRAINE
     Dosage: 100 MG, PRN
     Route: 048
     Dates: start: 20110524
  4. ASCOTOP [Concomitant]
     Active Substance: ZOLMITRIPTAN
     Indication: MIGRAINE
     Dosage: 5 MILLIGRAM, AS NECESSARY
     Route: 045
     Dates: start: 20051205
  5. ERENUMAB [Suspect]
     Active Substance: ERENUMAB
     Dosage: 70 MILLIGRAM
     Route: 065
     Dates: start: 20200601, end: 20200601
  6. ERENUMAB [Suspect]
     Active Substance: ERENUMAB
     Dosage: 70 MILLIGRAM
     Route: 065
     Dates: start: 20200824, end: 20200824
  7. ERENUMAB [Suspect]
     Active Substance: ERENUMAB
     Dosage: 70 MILLIGRAM
     Route: 065
     Dates: start: 20200629, end: 20200629
  8. ERENUMAB [Suspect]
     Active Substance: ERENUMAB
     Dosage: 70 MILLIGRAM
     Route: 065
     Dates: start: 20200921, end: 20200921

REACTIONS (3)
  - Arthropod bite [Recovered/Resolved]
  - Dry eye [Recovered/Resolved with Sequelae]
  - Borrelia infection [Recovered/Resolved]

NARRATIVE: CASE EVENT DATE: 202005
